FAERS Safety Report 10236914 (Version 3)
Quarter: 2014Q2

REPORT INFORMATION
  Report Type: Report from Study
  Country: US (occurrence: US)
  Receive Date: 20140613
  Receipt Date: 20140625
  Transmission Date: 20141212
  Serious: Yes (Hospitalization, Other)
  Sender: FDA-Public Use
  Company Number: US-ACTELION-A-NJ2013-87368

PATIENT
  Age: 45 Year
  Sex: Female

DRUGS (5)
  1. TRACLEER [Suspect]
     Indication: PULMONARY ARTERIAL HYPERTENSION
     Dosage: 125 MG, BID
     Route: 048
     Dates: start: 20120519
  2. TRACLEER [Suspect]
     Dosage: 62.5 MG, BID
     Route: 048
     Dates: start: 20120519, end: 20120618
  3. REMODULIN [Concomitant]
  4. ADCIRCA [Concomitant]
  5. COUMADIN [Concomitant]

REACTIONS (2)
  - Liver disorder [Not Recovered/Not Resolved]
  - Abdominal pain [Not Recovered/Not Resolved]
